FAERS Safety Report 5366872-1 (Version None)
Quarter: 2007Q2

REPORT INFORMATION
  Report Type: 
  Country: None (occurrence: None)
  Receive Date: 20070619
  Receipt Date: 20070606
  Transmission Date: 20071010
  Serious: Yes (Hospitalization)
  Sender: FDA-Public Use
  Company Number: TPA2006A01187

PATIENT
  Age: 62 Year
  Sex: Female
  Weight: 144.2439 kg

DRUGS (9)
  1. ACTOS [Suspect]
     Indication: DIABETES MELLITUS NON-INSULIN-DEPENDENT
     Dosage: SEE IMAGE
     Route: 048
     Dates: start: 20010101
  2. GLYBURIDE [Suspect]
     Indication: DIABETES MELLITUS
     Dosage: 5 MG, 3 IN 1 D, PER ORAL
     Route: 048
     Dates: start: 20010101
  3. GLIPIZIDE [Suspect]
     Indication: DIABETES MELLITUS NON-INSULIN-DEPENDENT
     Dosage: 5 MG, 3 IN 1 D, PER ORAL
     Route: 048
     Dates: start: 20040101
  4. IBUPROFEN (IBUPROFEN) (200 MILLIGRAM) [Concomitant]
  5. ATACAND (CANDESARTAN CILEXETIL) (16 MILLIGRAM) [Concomitant]
  6. LASIX (FUROSEMIDE) (20 MILLIGRAM) [Concomitant]
  7. DEMADEX [Concomitant]
  8. NITROSTAT [Concomitant]
  9. LYRICA [Concomitant]

REACTIONS (13)
  - ARTHRALGIA [None]
  - ASTHENIA [None]
  - BLOOD GLUCOSE DECREASED [None]
  - BLOOD GLUCOSE FLUCTUATION [None]
  - CARDIAC FAILURE CHRONIC [None]
  - DIABETIC NEUROPATHY [None]
  - HEMIPARESIS [None]
  - HYPERHIDROSIS [None]
  - OEDEMA PERIPHERAL [None]
  - RASH [None]
  - TRANSIENT ISCHAEMIC ATTACK [None]
  - TREMOR [None]
  - WEIGHT INCREASED [None]
